FAERS Safety Report 10460189 (Version 1)
Quarter: 2014Q3

REPORT INFORMATION
  Report Type: Spontaneous
  Country: DE (occurrence: DE)
  Receive Date: 20140917
  Receipt Date: 20140917
  Transmission Date: 20150326
  Serious: Yes (Congenital Anomaly)
  Sender: FDA-Public Use
  Company Number: DE-TEVA-507473GER

PATIENT
  Age: 0 Year
  Sex: Female

DRUGS (4)
  1. AMOXICILLIN 1000 MG [Concomitant]
     Route: 064
  2. MONTELUKAST [Suspect]
     Active Substance: MONTELUKAST SODIUM
     Route: 064
  3. CETIRIZINE [Suspect]
     Active Substance: CETIRIZINE HYDROCHLORIDE
     Route: 064
  4. BUDECORT [Suspect]
     Active Substance: BUDESONIDE
     Route: 064

REACTIONS (3)
  - Pulmonary artery stenosis [Not Recovered/Not Resolved]
  - Foetal exposure during pregnancy [Unknown]
  - Atrial septal defect [Not Recovered/Not Resolved]
